FAERS Safety Report 9761415 (Version 1)
Quarter: 2013Q4

REPORT INFORMATION
  Report Type: Spontaneous
  Country: FR (occurrence: FR)
  Receive Date: 20131216
  Receipt Date: 20131216
  Transmission Date: 20140711
  Serious: Yes (Hospitalization)
  Sender: FDA-Public Use
  Company Number: PHHY2013FR145992

PATIENT
  Age: 18 Year
  Sex: Female

DRUGS (9)
  1. EXJADE [Suspect]
     Indication: HAEMOCHROMATOSIS
     Dosage: 500 MG, QD
     Route: 048
     Dates: start: 20130822, end: 20130928
  2. LOVENOX [Concomitant]
     Dosage: 1 DF, QD
     Dates: start: 20130313
  3. FORLAX [Concomitant]
     Dosage: 1 DF, QD
     Dates: start: 20130616, end: 20131021
  4. INIPOMP [Concomitant]
     Dosage: 20 MG, QD
     Route: 048
     Dates: start: 20130428, end: 20130827
  5. GAVISCON [Concomitant]
     Dosage: UNK UKN, PRN
     Route: 048
     Dates: start: 20130501
  6. SPECIAFOLDINE [Concomitant]
     Dosage: 5 MG, BID
     Dates: start: 20130820
  7. SPASFON [Concomitant]
     Dosage: UNK UKN, UNK
     Route: 048
     Dates: start: 20130430
  8. XANAX [Concomitant]
     Dosage: 1 DF, PRN
     Route: 048
  9. SKENAN [Concomitant]
     Dosage: 30 MG, BID
     Route: 048
     Dates: start: 20130424

REACTIONS (1)
  - Liver injury [Recovering/Resolving]
